FAERS Safety Report 4586885-7 (Version None)
Quarter: 2005Q1

REPORT INFORMATION
  Report Type: 
  Country: None (occurrence: None)
  Receive Date: 20050218
  Receipt Date: 20011029
  Transmission Date: 20050727
  Serious: Yes (Hospitalization)
  Sender: FDA-Public Use
  Company Number: US-ROCHE-300495

PATIENT
  Age: 50 Year
  Sex: Male
  Weight: 118.6 kg

DRUGS (16)
  1. PEG-INTERFERON ALFA 2A (RO 25-8310) [Suspect]
     Route: 058
     Dates: start: 20010706
  2. RIBAVIRIN [Suspect]
     Route: 048
     Dates: start: 20010706
  3. TERAZOSIN [Concomitant]
     Dates: start: 20010501
  4. TRAZODONE [Concomitant]
     Dates: start: 20010730
  5. PAROXETINE [Concomitant]
     Dates: start: 20010730
  6. VITAMIN C [Concomitant]
     Dates: start: 19970615
  7. MULTI-VITAMINS [Concomitant]
     Dates: start: 19970615
  8. ASPIRIN [Concomitant]
  9. WELLBUTRIN [Concomitant]
  10. HYDROCHLOROTHIAZIDE [Concomitant]
  11. ISOSORBIDE DINITRATE [Concomitant]
  12. LISINOPRIL [Concomitant]
  13. METOPROLOL TARTRATE [Concomitant]
  14. OMEPRAZOLE [Concomitant]
  15. SIMVASTATIN [Concomitant]
  16. TAMSULOSIN [Concomitant]

REACTIONS (3)
  - CHEST PAIN [None]
  - CHOLECYSTITIS [None]
  - CHOLELITHIASIS [None]
